FAERS Safety Report 20617443 (Version 1)
Quarter: 2022Q1

REPORT INFORMATION
  Report Type: Spontaneous
  Country: IT (occurrence: IT)
  Receive Date: 20220321
  Receipt Date: 20220321
  Transmission Date: 20220423
  Serious: Yes (Other)
  Sender: FDA-Public Use
  Company Number: IT-MYLANLABS-2022M1021261

PATIENT
  Age: 35 Year
  Sex: Male

DRUGS (6)
  1. PREDNISONE [Suspect]
     Active Substance: PREDNISONE
     Indication: Keratitis
     Dosage: UNK (EYE DROPS)
     Route: 047
  2. PIMECROLIMUS [Suspect]
     Active Substance: PIMECROLIMUS
     Indication: Keratitis
     Dosage: 10 MG/G APPLIED TO THE EYELID, BID
     Route: 061
  3. PIMECROLIMUS [Suspect]
     Active Substance: PIMECROLIMUS
     Dosage: UNK, BID, FOR 10 DAYS
     Route: 061
  4. PIMECROLIMUS [Suspect]
     Active Substance: PIMECROLIMUS
     Dosage: UNK, QD, FOR 30 DAYS
     Route: 061
  5. DEXAMETHASONE [Suspect]
     Active Substance: DEXAMETHASONE
     Indication: Keratitis
     Dosage: UNK (EYE DROPS)
     Route: 047
  6. DUPILUMAB [Concomitant]
     Active Substance: DUPILUMAB
     Indication: Dermatitis atopic
     Dosage: UNK
     Route: 065

REACTIONS (2)
  - Drug ineffective [Unknown]
  - Off label use [Unknown]
